FAERS Safety Report 9420334 (Version 1)
Quarter: 2013Q3

REPORT INFORMATION
  Report Type: Report from Study
  Country: US (occurrence: US)
  Receive Date: 20130725
  Receipt Date: 20130725
  Transmission Date: 20140515
  Serious: No
  Sender: FDA-Public Use
  Company Number: US-ABBOTT-13P-163-1032450-00

PATIENT
  Age: 47 Year
  Sex: Male
  Weight: 122.58 kg

DRUGS (9)
  1. SYNTHROID [Suspect]
     Indication: HYPOTHYROIDISM
     Dosage: ALTERNATING DAYS 175MCG
     Dates: start: 20121230
  2. SYNTHROID [Suspect]
     Dosage: ALTERNATING DAYS 150 MCG
     Dates: start: 20121230
  3. SYNTHROID [Suspect]
     Dates: start: 201212, end: 20121229
  4. SYNTHROID [Suspect]
     Dates: start: 201210, end: 201212
  5. SYNTHROID [Suspect]
     Dates: start: 1994, end: 201210
  6. LISINOPRIL [Concomitant]
     Indication: HYPERTENSION
  7. GEMFIBROZIL [Concomitant]
     Indication: BLOOD TRIGLYCERIDES INCREASED
  8. ZETIA [Concomitant]
     Indication: HIGH DENSITY LIPOPROTEIN INCREASED
  9. ALLEGRA [Concomitant]
     Indication: HYPERSENSITIVITY

REACTIONS (2)
  - Blood thyroid stimulating hormone increased [Recovered/Resolved]
  - Blood thyroid stimulating hormone decreased [Not Recovered/Not Resolved]
